FAERS Safety Report 24303024 (Version 4)
Quarter: 2024Q4

REPORT INFORMATION
  Report Type: Spontaneous
  Country: FR (occurrence: FR)
  Receive Date: 20240910
  Receipt Date: 20241106
  Transmission Date: 20250114
  Serious: Yes (Disabling, Other)
  Sender: ROCHE
  Company Number: FR-ROCHE-10000072727

PATIENT
  Age: 73 Year
  Sex: Male
  Weight: 75 kg

DRUGS (5)
  1. VABYSMO [Suspect]
     Active Substance: FARICIMAB-SVOA
     Indication: Neovascular age-related macular degeneration
     Dosage: LEFT EYE
     Route: 050
     Dates: start: 20240206, end: 20240611
  2. VABYSMO [Suspect]
     Active Substance: FARICIMAB-SVOA
     Route: 050
     Dates: start: 20240305
  3. VABYSMO [Suspect]
     Active Substance: FARICIMAB-SVOA
     Route: 050
     Dates: start: 20240430
  4. VABYSMO [Suspect]
     Active Substance: FARICIMAB-SVOA
     Route: 050
     Dates: start: 20240611
  5. EYLEA [Suspect]
     Active Substance: AFLIBERCEPT
     Indication: Age-related macular degeneration
     Dosage: 40 MG/ML
     Route: 050
     Dates: start: 20230914, end: 20240102

REACTIONS (4)
  - Toxic anterior segment syndrome [Recovering/Resolving]
  - Ocular vasculitis [Recovering/Resolving]
  - Vitritis [Recovering/Resolving]
  - Chorioretinitis [Recovering/Resolving]

NARRATIVE: CASE EVENT DATE: 20240627
